FAERS Safety Report 7438363-5 (Version None)
Quarter: 2011Q2

REPORT INFORMATION
  Report Type: 
  Country: None (occurrence: None)
  Receive Date: 20110426
  Receipt Date: 20110329
  Transmission Date: 20111010
  Serious: Yes (Hospitalization, Other)
  Sender: FDA-Public Use
  Company Number: US-BAYER-201037022NA

PATIENT
  Age: 24 Year
  Sex: Female
  Weight: 74.83 kg

DRUGS (11)
  1. YASMIN [Suspect]
     Indication: PREMENSTRUAL SYNDROME
     Dosage: UNK
     Route: 048
     Dates: start: 20050301
  2. LISINOPRIL [Concomitant]
     Indication: HYPERTENSION
     Dosage: UNK
     Dates: start: 19960101
  3. LANTUS [Concomitant]
     Indication: DIABETES MELLITUS
     Dosage: UNK
     Dates: start: 19980101
  4. FLUCONAZOLE [Concomitant]
     Indication: FUNGAL INFECTION
     Dosage: UNK
     Dates: start: 20050101, end: 20100101
  5. AZITHROMYCIN [Concomitant]
  6. YASMIN [Suspect]
     Indication: DYSMENORRHOEA
  7. OCELLA [Suspect]
     Indication: PREMENSTRUAL SYNDROME
     Dosage: UNK
     Route: 048
     Dates: start: 20080701
  8. YASMIN [Suspect]
     Indication: OLIGOMENORRHOEA
  9. NOVOLOG [Concomitant]
     Indication: DIABETES MELLITUS
     Dosage: UNK
     Dates: start: 19980101
  10. OCELLA [Suspect]
     Indication: OLIGOMENORRHOEA
  11. OCELLA [Suspect]
     Indication: DYSMENORRHOEA

REACTIONS (1)
  - TRANSIENT ISCHAEMIC ATTACK [None]
